FAERS Safety Report 5282519-7 (Version None)
Quarter: 2007Q1

REPORT INFORMATION
  Report Type: 
  Country: None (occurrence: None)
  Receive Date: 20061226
  Receipt Date: 20060619
  Transmission Date: 20070707
  Serious: Yes (Other)
  Sender: FDA-Public Use
  Company Number: 2006-0009748

PATIENT
  Age: 50 Year
  Sex: Male

DRUGS (6)
  1. VIREAD [Suspect]
     Indication: HIV INFECTION
     Dates: end: 20060503
  2. LEXIVA [Concomitant]
  3. LAMIVUDINE [Concomitant]
  4. ROSIGLITAZONE [Concomitant]
  5. LOTENSIN [Concomitant]
  6. LASIX [Concomitant]

REACTIONS (2)
  - BLOOD CREATININE INCREASED [None]
  - CREATININE RENAL CLEARANCE DECREASED [None]
